FAERS Safety Report 7865078-1 (Version None)
Quarter: 2011Q4

REPORT INFORMATION
  Report Type: 
  Country: None (occurrence: None)
  Receive Date: 20111028
  Receipt Date: 20101011
  Transmission Date: 20120403
  Serious: No
  Sender: FDA-Public Use
  Company Number: US-GLAXOSMITHKLINE-A0885884A

PATIENT
  Age: 60 Year
  Sex: Female

DRUGS (3)
  1. ADVAIR DISKUS 100/50 [Suspect]
     Indication: NASOPHARYNGITIS
     Dosage: 1PUFF TWICE PER DAY
     Route: 055
     Dates: start: 20040101, end: 20040101
  2. LORCET-HD [Concomitant]
  3. VALIUM [Concomitant]

REACTIONS (1)
  - DRUG INEFFECTIVE [None]
